FAERS Safety Report 5956687-5 (Version None)
Quarter: 2008Q4

REPORT INFORMATION
  Report Type: 
  Country: None (occurrence: None)
  Receive Date: 20081031
  Receipt Date: 20080804
  Transmission Date: 20090506
  Serious: No
  Sender: FDA-Public Use
  Company Number: 2008PV036355

PATIENT
  Age: 63 Year
  Sex: Female
  Weight: 90.7194 kg

DRUGS (20)
  1. SYMLIN [Suspect]
     Indication: TYPE 2 DIABETES MELLITUS
     Dosage: 120 MCG;BID;SC
     Route: 058
     Dates: start: 20080601
  2. HUMULIN 70/30 [Concomitant]
  3. JANUVIA [Concomitant]
  4. ACTONEL [Concomitant]
  5. LEXAPRO [Concomitant]
  6. LEVOTHROID [Concomitant]
  7. METOPROLOL SUCCINATE [Concomitant]
  8. OMEPRAZOLE [Concomitant]
  9. LORAZEPAM [Concomitant]
  10. DIOVAN/HYDROCHLOROTHIAZIDE 160 [Concomitant]
  11. SIMVASTATIN [Concomitant]
  12. ASPIRIN [Concomitant]
  13. COMBIVENT [Concomitant]
  14. SINGULAIR [Concomitant]
  15. VITAMINS [Concomitant]
  16. MINERAL TAB [Concomitant]
  17. GLUCOVANCE [Concomitant]
  18. PLAVIX [Concomitant]
  19. LANTUS [Concomitant]
  20. BYETTA [Concomitant]

REACTIONS (2)
  - BLOOD GLUCOSE INCREASED [None]
  - OSTEOPOROSIS [None]
